FAERS Safety Report 9272920 (Version 2)
Quarter: 2013Q2

REPORT INFORMATION
  Report Type: Spontaneous
  Country: US (occurrence: US)
  Receive Date: 20130506
  Receipt Date: 20130605
  Transmission Date: 20140414
  Serious: No
  Sender: FDA-Public Use
  Company Number: US-009507513-1305USA000932

PATIENT
  Age: 21 Year
  Sex: Female
  Weight: 79.37 kg

DRUGS (2)
  1. IMPLANON [Suspect]
     Indication: CONTRACEPTION
     Dosage: 1 ROD UP TO 3 YEARS
     Route: 059
     Dates: start: 201211
  2. PROLOSEC OTC [Concomitant]

REACTIONS (2)
  - Hair growth abnormal [Unknown]
  - Hypoaesthesia [Unknown]
